FAERS Safety Report 13159700 (Version 1)
Quarter: 2017Q1

REPORT INFORMATION
  Report Type: Spontaneous
  Country: CN (occurrence: CN)
  Receive Date: 20170127
  Receipt Date: 20170127
  Transmission Date: 20170428
  Serious: Yes (Hospitalization)
  Sender: FDA-Public Use
  Company Number: CN-ASTRAZENECA-2017SE08550

PATIENT
  Age: 20522 Day
  Sex: Female

DRUGS (8)
  1. MEPEM [Suspect]
     Active Substance: MEROPENEM
     Indication: ANTI-INFECTIVE THERAPY
     Route: 042
     Dates: start: 20160823, end: 20160903
  2. MEPEM [Suspect]
     Active Substance: MEROPENEM
     Indication: ANTI-INFECTIVE THERAPY
     Route: 042
     Dates: start: 20160822, end: 20160823
  3. MEPEM [Suspect]
     Active Substance: MEROPENEM
     Indication: ANTI-INFECTIVE THERAPY
     Route: 042
     Dates: start: 20160903, end: 20160919
  4. MANNITOL. [Concomitant]
     Active Substance: MANNITOL
     Indication: INTRACRANIAL PRESSURE INCREASED
     Route: 065
     Dates: start: 20160820, end: 20160829
  5. VANCOCIN [Concomitant]
     Active Substance: VANCOMYCIN HYDROCHLORIDE
     Indication: ANTI-INFECTIVE THERAPY
     Route: 042
     Dates: start: 20160822, end: 20160919
  6. POLYENE PHOSPHATIDYLCHOLINE [Concomitant]
     Active Substance: PHOSPHOLIPID
     Route: 042
     Dates: start: 20160822, end: 20160831
  7. MUSHUTAN [Concomitant]
     Indication: PRODUCTIVE COUGH
     Route: 042
     Dates: start: 20160821, end: 20160911
  8. NIMOTONG [Concomitant]
     Indication: CEREBRAL VASOCONSTRICTION
     Dosage: 4 ML/H MICRO INFUSION PUMP TWO TIMES A DAY
     Route: 042
     Dates: start: 20160820, end: 20160829

REACTIONS (1)
  - Drug-induced liver injury [Recovering/Resolving]

NARRATIVE: CASE EVENT DATE: 20160823
